FAERS Safety Report 4622478-0 (Version None)
Quarter: 2005Q1

REPORT INFORMATION
  Report Type: 
  Country: None (occurrence: None)
  Receive Date: 20050325
  Receipt Date: 20050325
  Transmission Date: 20050727
  Serious: Yes (Death, Hospitalization)
  Sender: FDA-Public Use
  Company Number: None

PATIENT
  Age: 73 Year
  Sex: Male
  Weight: 72.5755 kg

DRUGS (1)
  1. ALLOPURINOL [Suspect]
     Indication: GOUT
     Dosage: P.O. DAILY
     Route: 048

REACTIONS (15)
  - ARTHRALGIA [None]
  - DEEP VEIN THROMBOSIS [None]
  - DERMATITIS BULLOUS [None]
  - ENCEPHALOPATHY [None]
  - GENERAL PHYSICAL HEALTH DETERIORATION [None]
  - INFLAMMATION [None]
  - MYOCARDIAL INFARCTION [None]
  - NECROSIS [None]
  - PNEUMONIA [None]
  - RASH [None]
  - RASH ERYTHEMATOUS [None]
  - RASH PRURITIC [None]
  - RENAL FAILURE ACUTE [None]
  - SEPSIS [None]
  - VASCULITIS [None]
